FAERS Safety Report 14152194 (Version 3)
Quarter: 2018Q2

REPORT INFORMATION
  Report Type: Spontaneous
  Country: JP (occurrence: JP)
  Receive Date: 20171102
  Receipt Date: 20180426
  Transmission Date: 20180711
  Serious: Yes (Other)
  Sender: FDA-Public Use
  Company Number: JP-ROCHE-2008119

PATIENT
  Age: 82 Year
  Sex: Female
  Weight: 41 kg

DRUGS (7)
  1. ALECENSA [Suspect]
     Active Substance: ALECTINIB HYDROCHLORIDE
     Dosage: 150MGX1 TIME, 300MGX1 TIME
     Route: 048
     Dates: start: 20171016
  2. NIFEDIPINE L [Concomitant]
     Dosage: DOSAGE IS UNCERTAIN.
     Route: 048
  3. FLUITRAN [Concomitant]
     Active Substance: TRICHLORMETHIAZIDE
     Dosage: DOSAGE IS UNCERTAIN.
     Route: 065
  4. NEXIUM [Concomitant]
     Active Substance: ESOMEPRAZOLE MAGNESIUM
     Dosage: DOSAGE IS UNCERTAIN.
     Route: 048
  5. ALECENSA [Suspect]
     Active Substance: ALECTINIB HYDROCHLORIDE
     Indication: LUNG ADENOCARCINOMA
     Route: 048
     Dates: start: 20170920
  6. MICARDIS [Concomitant]
     Active Substance: TELMISARTAN
     Dosage: DOSAGE IS UNCERTAIN.
     Route: 048
  7. MAGNESIUM OXIDE. [Concomitant]
     Active Substance: MAGNESIUM OXIDE
     Dosage: DOSAGE IS UNCERTAIN.
     Route: 065
     Dates: start: 20170925

REACTIONS (2)
  - Red blood cell count decreased [Unknown]
  - Haemolytic anaemia [Recovered/Resolved]

NARRATIVE: CASE EVENT DATE: 20170926
